FAERS Safety Report 6346968-8 (Version None)
Quarter: 2009Q3

REPORT INFORMATION
  Report Type: 
  Country: None (occurrence: None)
  Receive Date: 20090909
  Receipt Date: 20090909
  Transmission Date: 20100115
  Serious: Yes (Hospitalization)
  Sender: FDA-Public Use
  Company Number: None

PATIENT
  Age: 82 Year
  Sex: Female
  Weight: 60 kg

DRUGS (14)
  1. OXYCODONE SR 20 MG [Suspect]
     Indication: BACK PAIN
     Dosage: 20 MG BID PO PRIOR TO ADMISSION
     Route: 048
  2. MIRTAZAPINE [Concomitant]
  3. LORAZEPAM [Concomitant]
  4. CITALOPRAM HYDROBROMIDE [Concomitant]
  5. SIMVASTATIN [Concomitant]
  6. RISEDRONATE SODIUM [Concomitant]
  7. FLUTICASONE/SALMETEROL [Concomitant]
  8. ASPIRIN [Concomitant]
  9. ALBUTEROL/IPRATROPIUM INHALER [Concomitant]
  10. POLYETHYLENE GLYCOL [Concomitant]
  11. FIBER LAXATIVE [Concomitant]
  12. SENNA [Concomitant]
  13. CALCIUM + VITAMIN D [Concomitant]
  14. MULTIVITAMINE [Concomitant]

REACTIONS (6)
  - FALL [None]
  - HAEMATOMA [None]
  - HEAD INJURY [None]
  - LETHARGY [None]
  - SOMNOLENCE [None]
  - SYNCOPE [None]
